FAERS Safety Report 6833943-X (Version None)
Quarter: 2010Q3

REPORT INFORMATION
  Report Type: 
  Country: None (occurrence: None)
  Receive Date: 20100712
  Receipt Date: 20070417
  Transmission Date: 20110219
  Serious: No
  Sender: FDA-Public Use
  Company Number: US-PFIZER INC-2007027437

PATIENT
  Sex: Female
  Weight: 74.84 kg

DRUGS (4)
  1. CHANTIX [Suspect]
     Indication: SMOKING CESSATION THERAPY
     Dates: start: 20070328
  2. ROLAIDS [Suspect]
     Indication: NAUSEA
     Dates: start: 20070301
  3. ALLERGY MEDICATION [Concomitant]
     Indication: MULTIPLE ALLERGIES
  4. ALL OTHER THERAPEUTIC PRODUCTS [Concomitant]
     Indication: HORMONE THERAPY

REACTIONS (3)
  - ABNORMAL DREAMS [None]
  - NAUSEA [None]
  - SLEEP DISORDER [None]
